FAERS Safety Report 25375484 (Version 1)
Quarter: 2025Q2

REPORT INFORMATION
  Report Type: Spontaneous
  Country: PT (occurrence: PT)
  Receive Date: 20250529
  Receipt Date: 20250529
  Transmission Date: 20250716
  Serious: Yes (Other)
  Sender: NOVARTIS
  Company Number: PT-002147023-NVSC2025PT084714

PATIENT
  Sex: Female

DRUGS (1)
  1. ASCIMINIB [Suspect]
     Active Substance: ASCIMINIB
     Indication: Chronic myeloid leukaemia
     Dosage: 20 MG, BID
     Route: 065

REACTIONS (3)
  - Cytopenia [Unknown]
  - Platelet count decreased [Unknown]
  - Neutrophil count decreased [Unknown]
